FAERS Safety Report 8809759 (Version 2)
Quarter: 2012Q4

REPORT INFORMATION
  Report Type: 
  Country: US (occurrence: US)
  Receive Date: 20120926
  Receipt Date: 20121019
  Transmission Date: 20130627
  Serious: Yes (Other)
  Sender: FDA-Public Use
  Company Number: CHPA2012US020020

PATIENT
  Age: 67 Year
  Sex: Male

DRUGS (3)
  1. SLOW FE BROWN [Suspect]
     Indication: BLOOD IRON DECREASED
     Dosage: 1 DF, QD
     Route: 048
     Dates: start: 20120401
  2. PRENATAL VITAMINS [Concomitant]
     Dosage: Unk, Unk
  3. LANTUS [Concomitant]
     Indication: DIABETES MELLITUS
     Dosage: Unk, Unk

REACTIONS (3)
  - Ageusia [Recovered/Resolved]
  - Gastrointestinal disorder [Recovered/Resolved]
  - Expired drug administered [Unknown]
